FAERS Safety Report 8889086 (Version 2)
Quarter: 2012Q4

REPORT INFORMATION
  Report Type: Report from Study
  Country: JP (occurrence: JP)
  Receive Date: 20121106
  Receipt Date: 20121116
  Transmission Date: 20130627
  Serious: Yes (Hospitalization)
  Sender: FDA-Public Use
  Company Number: JP-UCBSA-069965

PATIENT
  Age: 39 Year
  Sex: Female
  Weight: 42.6 kg

DRUGS (9)
  1. CERTOLIZUMAB PEGOL [Suspect]
     Indication: RHEUMATOID ARTHRITIS
     Route: 058
     Dates: start: 20120730
  2. METHOTREXATE [Concomitant]
     Indication: RHEUMATOID ARTHRITIS
     Route: 048
     Dates: start: 20120731
  3. FOLIC ACID [Concomitant]
     Indication: PROPHYLAXIS
     Route: 048
     Dates: start: 20120802
  4. METOCLOPRAMIDE [Concomitant]
     Indication: PROPHYLAXIS
     Route: 048
     Dates: start: 20120904
  5. ISONIAZID [Concomitant]
     Indication: ANTIBIOTIC PROPHYLAXIS
     Route: 048
     Dates: start: 20120709
  6. PYRIDOXAL PHOSPHATE HYDRATE [Concomitant]
     Indication: ANTIBIOTIC PROPHYLAXIS
     Route: 048
     Dates: start: 20120709
  7. SODIUM HYALURONATE [Concomitant]
     Indication: SJOGREN^S SYNDROME
     Route: 047
     Dates: start: 20120827
  8. BETAMETHASONE BUTYRATE PROPIONATE [Concomitant]
     Indication: DERMATITIS ATOPIC
     Route: 061
     Dates: start: 20120910
  9. HEPARINOID [Concomitant]
     Indication: DERMATITIS ATOPIC
     Route: 061
     Dates: start: 20120910

REACTIONS (1)
  - Migraine [Recovered/Resolved]
